FAERS Safety Report 25831190 (Version 1)
Quarter: 2025Q3

REPORT INFORMATION
  Report Type: Other
  Country: GB (occurrence: GB)
  Receive Date: 20250922
  Receipt Date: 20250922
  Transmission Date: 20251021
  Serious: Yes (Other)
  Sender: MACLEODS
  Company Number: GB-TORRENT-00042660

PATIENT

DRUGS (1)
  1. LACOSAMIDE [Suspect]
     Active Substance: LACOSAMIDE
     Indication: Product used for unknown indication
     Route: 065

REACTIONS (6)
  - Epilepsy [Unknown]
  - Adverse drug reaction [Unknown]
  - Loss of employment [Unknown]
  - Multiple drug therapy [Unknown]
  - Illness [Unknown]
  - Incorrect dosage administered [Unknown]
